FAERS Safety Report 17825736 (Version 2)
Quarter: 2020Q3

REPORT INFORMATION
  Report Type: Report from Study
  Country: MX (occurrence: MX)
  Receive Date: 20200526
  Receipt Date: 20200708
  Transmission Date: 20201102
  Serious: Yes (Death)
  Sender: FDA-Public Use
  Company Number: MX-TEVA-2020-MX-1239371

PATIENT
  Age: 15 Year
  Sex: Female

DRUGS (3)
  1. DOXORUBICIN [Concomitant]
     Active Substance: DOXORUBICIN
     Indication: RHABDOMYOSARCOMA
     Route: 065
  2. CISPLATIN. [Concomitant]
     Active Substance: CISPLATIN
     Indication: RHABDOMYOSARCOMA
     Route: 065
  3. IRINOTECAN [Suspect]
     Active Substance: IRINOTECAN
     Indication: RHABDOMYOSARCOMA
     Route: 065

REACTIONS (3)
  - Diarrhoea [Fatal]
  - Febrile neutropenia [Fatal]
  - Septic shock [Fatal]
